FAERS Safety Report 9798740 (Version 1)
Quarter: 2014Q1

REPORT INFORMATION
  Report Type: Spontaneous
  Country: US (occurrence: US)
  Receive Date: 20140106
  Receipt Date: 20140106
  Transmission Date: 20141002
  Serious: No
  Sender: FDA-Public Use
  Company Number: US-GILEAD-2010-0029993

PATIENT
  Sex: Female
  Weight: 81.65 kg

DRUGS (7)
  1. LETAIRIS [Suspect]
     Indication: PULMONARY ARTERIAL HYPERTENSION
     Route: 048
     Dates: start: 20100528
  2. FUROSEMIDE [Concomitant]
  3. BENZONATATE [Concomitant]
  4. ACETYLCYSTEINE [Concomitant]
  5. GLYBURIDE [Concomitant]
  6. POTASSIUM CHLORIDE [Concomitant]
  7. ACTOS [Concomitant]

REACTIONS (3)
  - Headache [Unknown]
  - Oedema [Unknown]
  - Constipation [Unknown]
